FAERS Safety Report 25009658 (Version 1)
Quarter: 2025Q1

REPORT INFORMATION
  Report Type: Spontaneous
  Country: GB (occurrence: GB)
  Receive Date: 20250225
  Receipt Date: 20250225
  Transmission Date: 20250408
  Serious: Yes (Disabling, Other)
  Sender: TEVA
  Company Number: GB-MHRA-WEBRADR-202502180145169770-FYBMT

PATIENT
  Age: 23 Year
  Sex: Male

DRUGS (1)
  1. DAPSONE [Suspect]
     Active Substance: DAPSONE
     Indication: Eczema
     Route: 065
     Dates: end: 20250204

REACTIONS (2)
  - Amnesia [Recovering/Resolving]
  - Fatigue [Recovering/Resolving]

NARRATIVE: CASE EVENT DATE: 20241226
